FAERS Safety Report 8190301-6 (Version None)
Quarter: 2012Q1

REPORT INFORMATION
  Report Type: 
  Country: None (occurrence: None)
  Receive Date: 20120305
  Receipt Date: 20120219
  Transmission Date: 20120608
  Serious: Yes (Death, Other)
  Sender: FDA-Public Use
  Company Number: 2012S1000061

PATIENT
  Sex: Female

DRUGS (2)
  1. INOMAX [Suspect]
     Indication: HYPOXIA
     Dosage: 60 PPM;CONT;INH
     Route: 055
     Dates: start: 20120101, end: 20120219
  2. INOMAX [Suspect]

REACTIONS (2)
  - OXYGEN SATURATION DECREASED [None]
  - DEVICE FAILURE [None]
